FAERS Safety Report 6822040-5 (Version None)
Quarter: 2010Q3

REPORT INFORMATION
  Report Type: 
  Country: None (occurrence: None)
  Receive Date: 20100708
  Receipt Date: 20100628
  Transmission Date: 20110219
  Serious: Yes (Hospitalization)
  Sender: FDA-Public Use
  Company Number: US-KINGPHARMUSA00001-K201000811

PATIENT
  Age: 56 Year
  Sex: Female
  Weight: 111.81 kg

DRUGS (7)
  1. CYTOMEL [Suspect]
     Dosage: UNK
  2. METOPROLOL [Concomitant]
     Dosage: UNK
  3. DIOVAN HCT [Concomitant]
     Dosage: UNK
  4. HYDROCODONE BITARTRATE [Concomitant]
     Dosage: UNK
  5. DEXAMETHASONE [Concomitant]
     Dosage: UNK
     Dates: start: 20091124
  6. ZOFRAN [Concomitant]
     Dosage: UNK
     Dates: start: 20091203
  7. FENTANYL [Concomitant]
     Dosage: UNK
     Dates: start: 20100215

REACTIONS (11)
  - DEHYDRATION [None]
  - DIZZINESS [None]
  - GASTROENTERITIS [None]
  - HEADACHE [None]
  - HYPOCALCAEMIA [None]
  - NAUSEA [None]
  - PAIN [None]
  - PYREXIA [None]
  - TACHYCARDIA [None]
  - THROMBOCYTOPENIA [None]
  - VOMITING [None]
